FAERS Safety Report 8035909-3 (Version None)
Quarter: 2012Q1

REPORT INFORMATION
  Report Type: 
  Country: None (occurrence: None)
  Receive Date: 20120105
  Receipt Date: 20111222
  Transmission Date: 20120608
  Serious: Yes (Life-Threatening, Hospitalization)
  Sender: FDA-Public Use
  Company Number: 2006-03279

PATIENT
  Age: 76 Year
  Sex: Female
  Weight: 65 kg

DRUGS (11)
  1. OMEPRAZOLE (OMEPRAZOLE) UNK TO 12/25/2006 [Concomitant]
  2. PROMETHAZINE HYDROCHLORIDE (PROMETHAZINE HYDROCHLORIDE) 11/29/2006 TO [Concomitant]
  3. VELCADE [Suspect]
     Indication: MULTIPLE MYELOMA
     Dosage: 2.20 MG, UNK, INTRAVENOUS
     Route: 042
     Dates: start: 20061211, end: 20070111
  4. MS CONTIN (MORPHINE SULFATE) 12/11/2006 TO UNK [Concomitant]
  5. HYDROCORTISONE (HYDROCORTISONE) 11/29/2006 TO 11/29/2006 [Concomitant]
  6. METOCLOPRAMIDE (METOCLOPRAMIDE) 12/06/2006 TO 12/06/2006 [Concomitant]
  7. DEXAMETHASONE TAB [Suspect]
     Indication: MULTIPLE MYELOMA
     Dosage: 20 MG, UNK, ORAL
     Route: 048
     Dates: start: 20061211, end: 20070111
  8. ZOLEDRONIC ACID (ZOLEDRONIC ACID) 12/06/2006 TO 12/06/2006 [Concomitant]
  9. PREDNISONE (PREDNISONE) UNK TO 12/09/2006 [Concomitant]
  10. AMOXICILLIN (AMOXICILLIN) 12/06/2006 TO 12/06/2006 [Concomitant]
  11. FRUSEMIDE (FUROSEMIDE) 11/29/2006 TO 11/29/2006 [Concomitant]

REACTIONS (13)
  - MYOCARDIAL ISCHAEMIA [None]
  - ATRIAL FIBRILLATION [None]
  - SINUS TACHYCARDIA [None]
  - CONFUSIONAL STATE [None]
  - MUSCULAR WEAKNESS [None]
  - MOBILITY DECREASED [None]
  - RENAL FAILURE CHRONIC [None]
  - RESPIRATORY TRACT INFECTION [None]
  - TUMOUR LYSIS SYNDROME [None]
  - CARDIAC FAILURE [None]
  - CONSTIPATION [None]
  - MUCOSAL INFLAMMATION [None]
  - DIARRHOEA [None]
